FAERS Safety Report 17160805 (Version 3)
Quarter: 2022Q4

REPORT INFORMATION
  Report Type: Report from Study
  Country: US (occurrence: US)
  Receive Date: 20191216
  Receipt Date: 20221201
  Transmission Date: 20230113
  Serious: Yes (Hospitalization)
  Sender: FDA-Public Use
  Company Number: US-NOVARTISPH-NVSC2019US068641

PATIENT
  Sex: Male

DRUGS (1)
  1. TASIGNA [Suspect]
     Active Substance: NILOTINIB
     Indication: Product used for unknown indication
     Dosage: 150 MG
     Route: 048
     Dates: start: 20191127, end: 20191211

REACTIONS (3)
  - Dyspnoea [Unknown]
  - Insomnia [Unknown]
  - Cardiac disorder [Unknown]
